FAERS Safety Report 12277150 (Version 1)
Quarter: 2016Q2

REPORT INFORMATION
  Report Type: Spontaneous
  Country: US (occurrence: None)
  Receive Date: 20160415
  Receipt Date: 20160415
  Transmission Date: 20160815
  Serious: No
  Sender: FDA-Public Use
  Company Number: None

PATIENT
  Sex: Female

DRUGS (3)
  1. METFORMIN [Suspect]
     Active Substance: METFORMIN HYDROCHLORIDE
  2. LYRICA [Suspect]
     Active Substance: PREGABALIN
  3. TOUJEO [Suspect]
     Active Substance: INSULIN GLARGINE

REACTIONS (8)
  - Paraesthesia [None]
  - Drug ineffective [None]
  - Neuropathy peripheral [None]
  - Back pain [None]
  - Pain in extremity [None]
  - Wrong technique in product usage process [None]
  - Blood glucose increased [None]
  - Contusion [None]
